FAERS Safety Report 6919002-6 (Version None)
Quarter: 2010Q3

REPORT INFORMATION
  Report Type: 
  Country: None (occurrence: None)
  Receive Date: 20100726
  Receipt Date: 20090713
  Transmission Date: 20110219
  Serious: No
  Sender: FDA-Public Use
  Company Number: 2009-00378

PATIENT
  Age: 79 Year
  Sex: Female
  Weight: 99.7913 kg

DRUGS (4)
  1. ZICAM COLD REMEDY GEL SWABS [Suspect]
  2. DILTIAZEM [Concomitant]
  3. OMEPRAZOLE [Concomitant]
  4. ASPIRIN [Concomitant]

REACTIONS (1)
  - ANOSMIA [None]
